FAERS Safety Report 23972659 (Version 1)
Quarter: 2024Q2

REPORT INFORMATION
  Report Type: Spontaneous
  Country: US (occurrence: US)
  Receive Date: 20240613
  Receipt Date: 20240613
  Transmission Date: 20240715
  Serious: No
  Sender: FDA-Public Use
  Company Number: US-PFIZER INC-PV202400076161

PATIENT
  Age: 62 Year
  Sex: Female

DRUGS (1)
  1. ZAVZPRET [Suspect]
     Active Substance: ZAVEGEPANT HYDROCHLORIDE
     Indication: Migraine
     Dosage: 1 SPRAY BY INTRA-NASAL ROUTE DAILY AS NEEDED. NOT TO EXCEED MORE THAN 1 SPRAY PER 24 HOURS.
     Route: 045

REACTIONS (1)
  - Drug ineffective [Unknown]
